FAERS Safety Report 8806980 (Version 1)
Quarter: 2012Q4

REPORT INFORMATION
  Report Type: 
  Country: US (occurrence: US)
  Receive Date: 20120925
  Receipt Date: 20120925
  Transmission Date: 20130627
  Serious: Yes (Other)
  Sender: FDA-Public Use
  Company Number: US-ROCHE-1126445

PATIENT
  Sex: Female

DRUGS (4)
  1. AVASTIN [Suspect]
     Indication: LUNG NEOPLASM MALIGNANT
     Route: 065
     Dates: start: 2006
  2. TAXOL [Concomitant]
     Route: 065
     Dates: start: 2006
  3. CARBOPLATIN [Concomitant]
  4. ABRAXANE [Concomitant]

REACTIONS (3)
  - Palmar-plantar erythrodysaesthesia syndrome [Unknown]
  - Neuropathy peripheral [Recovered/Resolved]
  - Disease progression [Recovered/Resolved]
